FAERS Safety Report 24240580 (Version 1)
Quarter: 2024Q3

REPORT INFORMATION
  Report Type: Spontaneous
  Country: US (occurrence: US)
  Receive Date: 20240822
  Receipt Date: 20240822
  Transmission Date: 20241017
  Serious: No
  Sender: ELI LILLY AND CO
  Company Number: US-ELI_LILLY_AND_COMPANY-US202408011716

PATIENT
  Age: 63 Year
  Sex: Female

DRUGS (2)
  1. EMGALITY [Suspect]
     Active Substance: GALCANEZUMAB-GNLM
     Indication: Migraine
     Dosage: 120 MG, OTHER (LOADING DOSE)
     Route: 058
  2. CLARITIN [Concomitant]
     Active Substance: LORATADINE
     Indication: Injection site reaction

REACTIONS (2)
  - Underdose [Unknown]
  - Injection site pain [Unknown]
